FAERS Safety Report 14507238 (Version 2)
Quarter: 2018Q1

REPORT INFORMATION
  Report Type: Spontaneous
  Country: DE (occurrence: DE)
  Receive Date: 20180208
  Receipt Date: 20180309
  Transmission Date: 20180509
  Serious: Yes (Hospitalization, Other)
  Sender: FDA-Public Use
  Company Number: DE-ELI_LILLY_AND_COMPANY-DE201801013130

PATIENT
  Age: 54 Year
  Sex: Female

DRUGS (3)
  1. TRULICITY [Suspect]
     Active Substance: DULAGLUTIDE
     Dosage: 1.5 MG, UNKNOWN
     Route: 065
     Dates: start: 20170916
  2. TRULICITY [Suspect]
     Active Substance: DULAGLUTIDE
     Dosage: 1.5 MG, UNKNOWN
     Route: 065
     Dates: start: 20171025
  3. TRULICITY [Suspect]
     Active Substance: DULAGLUTIDE
     Indication: PRODUCT USED FOR UNKNOWN INDICATION
     Dosage: 0.75 MG, UNKNOWN
     Route: 065
     Dates: start: 20170904

REACTIONS (13)
  - Chronic obstructive pulmonary disease [Unknown]
  - Decreased appetite [Recovered/Resolved]
  - Acute kidney injury [Recovered/Resolved]
  - Atrial fibrillation [Unknown]
  - Obesity [Unknown]
  - Urosepsis [Unknown]
  - Thirst decreased [Recovered/Resolved]
  - Acute kidney injury [Unknown]
  - Depression [Unknown]
  - Hypertension [Unknown]
  - Weight decreased [Unknown]
  - Respiratory failure [Unknown]
  - Oligodipsia [Unknown]

NARRATIVE: CASE EVENT DATE: 20171013
